FAERS Safety Report 10505055 (Version 2)
Quarter: 2014Q4

REPORT INFORMATION
  Report Type: Spontaneous
  Country: JP (occurrence: JP)
  Receive Date: 20141008
  Receipt Date: 20141031
  Transmission Date: 20150528
  Serious: Yes (Hospitalization)
  Sender: FDA-Public Use
  Company Number: JP-SA-2014SA136775

PATIENT
  Age: 61 Year
  Sex: Female

DRUGS (4)
  1. POTASSIUM [Concomitant]
     Active Substance: POTASSIUM
     Indication: HYPOKALAEMIA
  2. FUROSEMIDE. [Suspect]
     Active Substance: FUROSEMIDE
     Indication: GITELMAN^S SYNDROME
     Route: 065
  3. EPLERENONE. [Concomitant]
     Active Substance: EPLERENONE
     Indication: HYPOKALAEMIA
  4. THIAZIDE DERIVATIVES [Suspect]
     Active Substance: UNSPECIFIED INGREDIENT
     Indication: GITELMAN^S SYNDROME
     Route: 065

REACTIONS (4)
  - Arthritis [Recovering/Resolving]
  - Pyrexia [Recovering/Resolving]
  - Chondrocalcinosis [Recovering/Resolving]
  - Arthralgia [Recovering/Resolving]
